FAERS Safety Report 5964061-0 (Version None)
Quarter: 2008Q4

REPORT INFORMATION
  Report Type: 
  Country: None (occurrence: None)
  Receive Date: 20081124
  Receipt Date: 20081111
  Transmission Date: 20090506
  Serious: Yes (Other)
  Sender: FDA-Public Use
  Company Number: US-ELI_LILLY_AND_COMPANY-US200811002723

PATIENT
  Age: 43 Year
  Sex: Male

DRUGS (3)
  1. ZYPREXA [Suspect]
     Indication: SCHIZOPHRENIA
     Dosage: 20 MG, EACH EVENING
  2. ZYPREXA [Suspect]
     Dosage: 10 MG, EACH MORNING
  3. ZYPREXA [Suspect]
     Dosage: 10 MG, EACH EVENING

REACTIONS (2)
  - GASTROINTESTINAL TUBE INSERTION [None]
  - OVERDOSE [None]
